FAERS Safety Report 7817308-X (Version None)
Quarter: 2011Q4

REPORT INFORMATION
  Report Type: 
  Country: None (occurrence: None)
  Receive Date: 20111017
  Receipt Date: 20111006
  Transmission Date: 20120403
  Serious: Yes (Other)
  Sender: FDA-Public Use
  Company Number: US-AMGEN-USASP2011051790

PATIENT
  Age: 57 Year
  Sex: Male

DRUGS (1)
  1. NEULASTA [Suspect]
     Indication: PRODUCT USED FOR UNKNOWN INDICATION
     Dates: start: 20110915

REACTIONS (3)
  - PYREXIA [None]
  - THERAPEUTIC RESPONSE DECREASED [None]
  - WHITE BLOOD CELL COUNT DECREASED [None]
